FAERS Safety Report 8381857-9 (Version None)
Quarter: 2012Q2

REPORT INFORMATION
  Report Type: 
  Country: None (occurrence: None)
  Receive Date: 20120522
  Receipt Date: 20120522
  Transmission Date: 20120825
  Serious: Yes (Hospitalization)
  Sender: FDA-Public Use
  Company Number: None

PATIENT
  Age: 60 Year
  Sex: Female
  Weight: 77.1115 kg

DRUGS (1)
  1. SEPTRA [Suspect]

REACTIONS (9)
  - DIALYSIS [None]
  - VENTRICULAR EXTRASYSTOLES [None]
  - BLOOD CREATININE INCREASED [None]
  - NODAL ARRHYTHMIA [None]
  - HYPERKALAEMIA [None]
  - BLOOD UREA INCREASED [None]
  - CHEST PAIN [None]
  - DYSPNOEA [None]
  - ASTHENIA [None]
